FAERS Safety Report 5464518-5 (Version None)
Quarter: 2007Q3

REPORT INFORMATION
  Report Type: 
  Country: None (occurrence: None)
  Receive Date: 20070921
  Receipt Date: 20070913
  Transmission Date: 20080115
  Serious: No
  Sender: FDA-Public Use
  Company Number: US-BOEHRINGER INGELHEIM PHARMACEUTICALS, INC.-2007-BP-21048BP

PATIENT
  Age: 40 Year
  Sex: Female

DRUGS (1)
  1. FLOMAX [Suspect]
     Indication: BLADDER OBSTRUCTION
     Route: 048
     Dates: start: 20070911

REACTIONS (2)
  - FEELING ABNORMAL [None]
  - PRESYNCOPE [None]
